FAERS Safety Report 8344718-7 (Version None)
Quarter: 2012Q2

REPORT INFORMATION
  Report Type: 
  Country: None (occurrence: None)
  Receive Date: 20120508
  Receipt Date: 20120427
  Transmission Date: 20120825
  Serious: Yes (Hospitalization)
  Sender: FDA-Public Use
  Company Number: US-BRISTOL-MYERS SQUIBB COMPANY-16555542

PATIENT
  Age: 13 Year
  Sex: Male
  Weight: 43 kg

DRUGS (1)
  1. IPILIMUMAB [Suspect]
     Indication: MALIGNANT MELANOMA
     Dosage: LAST DOSE 11APR12.
     Route: 042
     Dates: start: 20120321

REACTIONS (1)
  - UPPER RESPIRATORY TRACT INFECTION [None]
